FAERS Safety Report 16763455 (Version 1)
Quarter: 2019Q3

REPORT INFORMATION
  Report Type: Spontaneous
  Country: GB (occurrence: GB)
  Receive Date: 20190902
  Receipt Date: 20190902
  Transmission Date: 20191005
  Serious: Yes (Other)
  Sender: FDA-Public Use
  Company Number: GB-TEVA-2019-GB-1099951

PATIENT
  Age: 98 Year
  Sex: Female
  Weight: 65 kg

DRUGS (1)
  1. QUETIAPINE. [Suspect]
     Active Substance: QUETIAPINE
     Dosage: HALF A TABLET IN THE MORNING, 12.5 MG
     Route: 002
     Dates: start: 20190618

REACTIONS (4)
  - Depressed level of consciousness [Unknown]
  - Hypersomnia [Unknown]
  - Hypotension [Unknown]
  - Brain hypoxia [Recovered/Resolved]

NARRATIVE: CASE EVENT DATE: 20190704
